FAERS Safety Report 4269861-3 (Version None)
Quarter: 2004Q1

REPORT INFORMATION
  Report Type: 
  Country: None (occurrence: None)
  Receive Date: 20040112
  Receipt Date: 20040112
  Transmission Date: 20041129
  Serious: Yes (Hospitalization)
  Sender: FDA-Public Use
  Company Number: None

PATIENT
  Age: 73 Year
  Sex: Male

DRUGS (1)
  1. HYDROCHLOROTHIAZIDE [Suspect]
     Indication: HYPERTENSION
     Dosage: 75 MG BID
     Dates: start: 19980501

REACTIONS (3)
  - CONFUSIONAL STATE [None]
  - HYPOKALAEMIA [None]
  - HYPOMAGNESAEMIA [None]
